FAERS Safety Report 26116104 (Version 1)
Quarter: 2025Q4

REPORT INFORMATION
  Report Type: Spontaneous
  Country: AU (occurrence: AU)
  Receive Date: 20251203
  Receipt Date: 20251203
  Transmission Date: 20260117
  Serious: Yes (Other)
  Sender: NOVARTIS
  Company Number: AU-002147023-NVSC2025AU183191

PATIENT
  Age: 12 Month

DRUGS (1)
  1. ZOLGENSMA [Suspect]
     Active Substance: ONASEMNOGENE ABEPARVOVEC-XIOI
     Indication: Product used for unknown indication
     Dosage: UNK, ONCE/SINGLE
     Route: 042

REACTIONS (4)
  - Perinatal stroke [Unknown]
  - Congenital hemiparesis [Unknown]
  - Therapeutic response shortened [Unknown]
  - Off label use [Unknown]
